FAERS Safety Report 8483030-2 (Version None)
Quarter: 2012Q3

REPORT INFORMATION
  Report Type: 
  Country: None (occurrence: None)
  Receive Date: 20120702
  Receipt Date: 20120618
  Transmission Date: 20120928
  Serious: No
  Sender: FDA-Public Use
  Company Number: US-ASTRAZENECA-2012SE41170

PATIENT
  Age: 69 Year
  Sex: Female

DRUGS (11)
  1. GLIPIZIDE [Concomitant]
  2. LEVEMIR [Concomitant]
  3. ATENOLOL [Concomitant]
  4. FLUTICASONE PROPIONATE [Concomitant]
  5. IPRATROPIUM BROMIDE [Concomitant]
  6. NOVOLOG [Concomitant]
  7. CRESTOR [Suspect]
     Route: 048
     Dates: start: 20101203
  8. ADVAIR DISKUS 100/50 [Concomitant]
  9. ASPIRIN [Concomitant]
  10. LISINOPRIL [Concomitant]
  11. METFORMIN HCL [Concomitant]

REACTIONS (1)
  - WHEEZING [None]
